FAERS Safety Report 5406077-9 (Version None)
Quarter: 2007Q3

REPORT INFORMATION
  Report Type: 
  Country: None (occurrence: None)
  Receive Date: 20070806
  Receipt Date: 20070730
  Transmission Date: 20080115
  Serious: Yes (Other)
  Sender: FDA-Public Use
  Company Number: CA-ASTRAZENECA-2007UW18456

PATIENT
  Age: 65 Year
  Sex: Male

DRUGS (13)
  1. ATACAND [Suspect]
     Route: 048
     Dates: start: 20070703, end: 20070710
  2. ATACAND [Suspect]
     Route: 048
     Dates: start: 20070710, end: 20070728
  3. CRESTOR [Suspect]
     Indication: HYPERCHOLESTEROLAEMIA
     Route: 048
  4. ASPIRIN [Concomitant]
     Indication: ANTICOAGULANT THERAPY
     Route: 048
  5. EZETROL [Concomitant]
     Indication: HYPERCHOLESTEROLAEMIA
     Route: 048
  6. NITROLINGUAL [Concomitant]
     Indication: ANGINA PECTORIS
     Route: 048
  7. ALLOPURINOL [Concomitant]
     Indication: HYPERURICAEMIA
     Route: 048
  8. MONOCOR [Concomitant]
     Indication: ANGINA PECTORIS
     Route: 048
  9. MAVIK [Concomitant]
     Indication: HYPERTENSION
     Route: 048
  10. ASCORBIC ACID [Concomitant]
     Indication: SUPPLEMENTATION THERAPY
     Route: 048
  11. VITAMIN E [Concomitant]
     Indication: SUPPLEMENTATION THERAPY
     Route: 048
  12. ADVAIR DISKUS 100/50 [Concomitant]
     Indication: DYSPNOEA
     Dosage: 500
     Route: 055
  13. ARTHROTEC [Concomitant]
     Indication: ANTIINFLAMMATORY THERAPY
     Route: 048

REACTIONS (4)
  - EYE SWELLING [None]
  - OEDEMA PERIPHERAL [None]
  - SKIN DISCOLOURATION [None]
  - VARICOSE VEIN [None]
